FAERS Safety Report 9573511 (Version 4)
Quarter: 2013Q4

REPORT INFORMATION
  Report Type: Spontaneous
  Country: SE (occurrence: SE)
  Receive Date: 20131001
  Receipt Date: 20131129
  Transmission Date: 20140711
  Serious: Yes (Hospitalization)
  Sender: FDA-Public Use
  Company Number: SE-ASTRAZENECA-2013SE65104

PATIENT
  Age: 44 Year
  Sex: Female

DRUGS (5)
  1. NEXIUM HP [Suspect]
     Indication: GASTRITIS
     Dosage: 4+0+0+4
     Route: 048
     Dates: start: 20130513, end: 20130519
  2. AMOXICILLIN [Suspect]
     Indication: GASTRITIS
     Dates: start: 20130513, end: 20130519
  3. CLARITHROMYCIN [Suspect]
     Indication: GASTRITIS
     Dates: start: 20130513, end: 20130519
  4. SAROTEN [Suspect]
     Route: 048
     Dates: start: 20130517
  5. SAROTEN [Suspect]
     Route: 048

REACTIONS (7)
  - Hypoaesthesia oral [Not Recovered/Not Resolved]
  - Eosinophilia [Not Recovered/Not Resolved]
  - Dysphagia [Not Recovered/Not Resolved]
  - Burning sensation [Not Recovered/Not Resolved]
  - Mucocutaneous rash [Unknown]
  - Drug eruption [Not Recovered/Not Resolved]
  - Pruritus [Not Recovered/Not Resolved]
